FAERS Safety Report 23193276 (Version 1)
Quarter: 2023Q4

REPORT INFORMATION
  Report Type: Report from Study
  Country: CO (occurrence: CO)
  Receive Date: 20231116
  Receipt Date: 20231116
  Transmission Date: 20240110
  Serious: Yes (Other)
  Sender: FDA-Public Use
  Company Number: CO-002147023-NVSC2023CO049699

PATIENT
  Sex: Female

DRUGS (1)
  1. COSENTYX [Suspect]
     Active Substance: SECUKINUMAB
     Indication: Psoriatic arthropathy
     Dosage: 300 MG, QMO
     Route: 058

REACTIONS (15)
  - Psoriatic arthropathy [Unknown]
  - Condition aggravated [Unknown]
  - Gait disturbance [Unknown]
  - Arthropathy [Unknown]
  - Pain [Unknown]
  - Skin haemorrhage [Unknown]
  - Skin plaque [Unknown]
  - Erythema [Unknown]
  - Scratch [Unknown]
  - Pruritus [Unknown]
  - Discomfort [Unknown]
  - Stress [Unknown]
  - Feeling abnormal [Unknown]
  - Urticaria [Unknown]
  - Therapeutic response shortened [Unknown]
